FAERS Safety Report 19389461 (Version 3)
Quarter: 2022Q1

REPORT INFORMATION
  Report Type: Report from Study
  Country: US (occurrence: US)
  Receive Date: 20210608
  Receipt Date: 20220311
  Transmission Date: 20220423
  Serious: No
  Sender: FDA-Public Use
  Company Number: NVSC2021US127379

PATIENT
  Sex: Female

DRUGS (3)
  1. ENTRESTO [Suspect]
     Active Substance: SACUBITRIL\VALSARTAN
     Indication: Product used for unknown indication
     Dosage: 24.26 MG (SACUBITRIL 24.3 MG, VALSARTAN 25.7 MG), Q2H (1 TAB AM / 2 TABS PM)
     Route: 048
     Dates: start: 202103
  2. ENTRESTO [Suspect]
     Active Substance: SACUBITRIL\VALSARTAN
     Dosage: 1 DOSAGE FORM, BID 24/26 (SACUBITRIL 24.3 MG, VALSARTAN 25.7 MG)
     Route: 048
  3. ENTRESTO [Suspect]
     Active Substance: SACUBITRIL\VALSARTAN
     Dosage: 1 DOSAGE FORM, TID 24/26 (SACUBITRIL 24.3 MG, VALSARTAN 25.7 MG)
     Route: 048

REACTIONS (4)
  - Myalgia [Unknown]
  - Neck pain [Unknown]
  - Insomnia [Unknown]
  - Inappropriate schedule of product administration [Unknown]
